FAERS Safety Report 4772373-1 (Version None)
Quarter: 2005Q3

REPORT INFORMATION
  Report Type: 
  Country: None (occurrence: None)
  Receive Date: 20050919
  Receipt Date: 20041229
  Transmission Date: 20060218
  Serious: No
  Sender: FDA-Public Use
  Company Number: US-BRISTOL-MYERS SQUIBB COMPANY-12808754

PATIENT
  Sex: Female

DRUGS (1)
  1. KENALOG-40 [Suspect]
     Indication: BACK PAIN
     Route: 051
     Dates: start: 20041001

REACTIONS (2)
  - SKIN HYPERPIGMENTATION [None]
  - SKIN HYPOPIGMENTATION [None]
